FAERS Safety Report 5946025-6 (Version None)
Quarter: 2008Q4

REPORT INFORMATION
  Report Type: 
  Country: None (occurrence: None)
  Receive Date: 20081106
  Receipt Date: 20081106
  Transmission Date: 20090506
  Serious: Yes (Other)
  Sender: FDA-Public Use
  Company Number: None

PATIENT
  Age: 25 Year
  Sex: Female
  Weight: 56.6996 kg

DRUGS (1)
  1. JOLESSA 0.15MG BARR LABORATORIES [Suspect]
     Indication: CONTRACEPTION
     Dosage: 0.15MG 1/DAY PO
     Route: 048
     Dates: start: 20080922, end: 20081105

REACTIONS (3)
  - ABDOMINAL DISTENSION [None]
  - FEMALE ORGASMIC DISORDER [None]
  - MUSCLE SPASMS [None]
